FAERS Safety Report 6608116-6 (Version None)
Quarter: 2010Q1

REPORT INFORMATION
  Report Type: 
  Country: None (occurrence: None)
  Receive Date: 20100301
  Receipt Date: 20100222
  Transmission Date: 20100710
  Serious: Yes (Death)
  Sender: FDA-Public Use
  Company Number: CHPA2010US03808

PATIENT
  Age: 47 Year
  Sex: Male

DRUGS (5)
  1. LORATADINE (NCH) [Suspect]
     Dosage: UNK,UNK
     Route: 048
  2. ACETAMINOPHEN W/ PROPOXYPHENE HCL [Suspect]
     Route: 048
  3. DULOXETINE HYDROCHLORIDE [Suspect]
     Route: 048
  4. ZOLPIDEM [Suspect]
     Route: 048
  5. DRUG THERAPY NOS [Suspect]
     Route: 048

REACTIONS (1)
  - DEATH [None]
